FAERS Safety Report 22529856 (Version 2)
Quarter: 2023Q2

REPORT INFORMATION
  Report Type: Spontaneous
  Country: CA (occurrence: CA)
  Receive Date: 20230607
  Receipt Date: 20230621
  Transmission Date: 20230722
  Serious: Yes (Other)
  Sender: FDA-Public Use
  Company Number: CA-002147023-NVSC2021CA315423

PATIENT

DRUGS (218)
  1. ADVAIR HFA [Suspect]
     Active Substance: FLUTICASONE PROPIONATE\SALMETEROL XINAFOATE
     Indication: Product used for unknown indication
     Dosage: 500 MG, BID(500 MG, BID)
     Route: 065
  2. ADVAIR HFA [Suspect]
     Active Substance: FLUTICASONE PROPIONATE\SALMETEROL XINAFOATE
     Dosage: 500 MG, QD
     Route: 065
  3. ADVAIR HFA [Suspect]
     Active Substance: FLUTICASONE PROPIONATE\SALMETEROL XINAFOATE
     Dosage: 500 MG
     Route: 065
  4. ADVAIR HFA [Suspect]
     Active Substance: FLUTICASONE PROPIONATE\SALMETEROL XINAFOATE
     Dosage: 500 MG, BID
     Route: 065
  5. ADVAIR HFA [Suspect]
     Active Substance: FLUTICASONE PROPIONATE\SALMETEROL XINAFOATE
     Dosage: 500 MG, BID
     Route: 065
  6. ADVAIR HFA [Suspect]
     Active Substance: FLUTICASONE PROPIONATE\SALMETEROL XINAFOATE
     Dosage: 500 MG, BID
     Route: 065
  7. ADVAIR HFA [Suspect]
     Active Substance: FLUTICASONE PROPIONATE\SALMETEROL XINAFOATE
     Dosage: 500 MG, BID
     Route: 065
  8. ADVAIR HFA [Suspect]
     Active Substance: FLUTICASONE PROPIONATE\SALMETEROL XINAFOATE
     Dosage: 500 MG, BID
     Route: 065
  9. ADVAIR HFA [Suspect]
     Active Substance: FLUTICASONE PROPIONATE\SALMETEROL XINAFOATE
     Dosage: 500 MG, QD
     Route: 065
  10. ADVAIR HFA [Suspect]
     Active Substance: FLUTICASONE PROPIONATE\SALMETEROL XINAFOATE
     Dosage: 500 MG, QD
     Route: 065
  11. ADVAIR HFA [Suspect]
     Active Substance: FLUTICASONE PROPIONATE\SALMETEROL XINAFOATE
     Dosage: 500 MG
     Route: 065
  12. ADVAIR HFA [Suspect]
     Active Substance: FLUTICASONE PROPIONATE\SALMETEROL XINAFOATE
     Dosage: 500 MG
     Route: 065
  13. ADVAIR HFA [Suspect]
     Active Substance: FLUTICASONE PROPIONATE\SALMETEROL XINAFOATE
     Dosage: 500 MG
     Route: 065
  14. ADVAIR HFA [Suspect]
     Active Substance: FLUTICASONE PROPIONATE\SALMETEROL XINAFOATE
     Dosage: 500 MG
     Route: 065
  15. ADVAIR HFA [Suspect]
     Active Substance: FLUTICASONE PROPIONATE\SALMETEROL XINAFOATE
     Dosage: 500 MG, QD
     Route: 065
  16. ALBUTEROL [Suspect]
     Active Substance: ALBUTEROL
     Indication: Product used for unknown indication
     Dosage: UNK
     Route: 065
  17. ALBUTEROL [Suspect]
     Active Substance: ALBUTEROL
     Dosage: UNK
     Route: 065
  18. ALBUTEROL [Suspect]
     Active Substance: ALBUTEROL
     Dosage: UNK
     Route: 065
  19. ALBUTEROL [Suspect]
     Active Substance: ALBUTEROL
     Dosage: UNK
     Route: 065
  20. ABACAVIR SULFATE\LAMIVUDINE [Suspect]
     Active Substance: ABACAVIR SULFATE\LAMIVUDINE
     Indication: Product used for unknown indication
     Dosage: UNK
     Route: 065
  21. VENTOLIN [Suspect]
     Active Substance: ALBUTEROL SULFATE
     Indication: Product used for unknown indication
     Dosage: UNK
     Route: 065
  22. VENTOLIN [Suspect]
     Active Substance: ALBUTEROL SULFATE
     Dosage: UNK
     Route: 065
  23. FLUTICASONE PROPIONATE [Suspect]
     Active Substance: FLUTICASONE PROPIONATE
     Indication: Product used for unknown indication
     Dosage: 500 MG, BID
     Route: 065
  24. FLUTICASONE PROPIONATE [Suspect]
     Active Substance: FLUTICASONE PROPIONATE
     Dosage: 500 MG, BID
     Route: 065
  25. FLUTICASONE PROPIONATE [Suspect]
     Active Substance: FLUTICASONE PROPIONATE
     Dosage: 500 MG
     Route: 065
  26. FLUTICASONE PROPIONATE [Suspect]
     Active Substance: FLUTICASONE PROPIONATE
     Dosage: 500 MG, QD
     Route: 065
  27. FLUTICASONE PROPIONATE [Suspect]
     Active Substance: FLUTICASONE PROPIONATE
     Dosage: 500 MG, QD
     Route: 065
  28. FLUTICASONE PROPIONATE [Suspect]
     Active Substance: FLUTICASONE PROPIONATE
     Dosage: 500 MG
     Route: 065
  29. FLUTICASONE PROPIONATE [Suspect]
     Active Substance: FLUTICASONE PROPIONATE
     Dosage: 500 MG
     Route: 065
  30. FLUTICASONE PROPIONATE [Suspect]
     Active Substance: FLUTICASONE PROPIONATE
     Dosage: 500 MG
     Route: 065
  31. FLUTICASONE PROPIONATE [Suspect]
     Active Substance: FLUTICASONE PROPIONATE
     Dosage: 500 MG, BID
     Route: 065
  32. FLOVENT [Suspect]
     Active Substance: FLUTICASONE PROPIONATE
     Indication: Product used for unknown indication
     Dosage: UNK
     Route: 065
  33. ACETAMINOPHEN [Suspect]
     Active Substance: ACETAMINOPHEN
     Indication: Product used for unknown indication
     Dosage: UNK
     Route: 065
  34. ABACAVIR [Suspect]
     Active Substance: ABACAVIR
     Indication: Product used for unknown indication
     Dosage: UNK
     Route: 065
  35. ACTEMRA [Suspect]
     Active Substance: TOCILIZUMAB
     Indication: Rheumatoid arthritis
     Dosage: 100 MG, QD(100 MG, QD)
     Route: 058
  36. ACTEMRA [Suspect]
     Active Substance: TOCILIZUMAB
     Dosage: 500 MG, QD(500 MG, QD)
     Route: 058
  37. ACTEMRA [Suspect]
     Active Substance: TOCILIZUMAB
     Dosage: 500 MG, BID(500 MG BID (INJECTION))
     Route: 058
  38. ACTEMRA [Suspect]
     Active Substance: TOCILIZUMAB
     Dosage: 500 MG, BID(500 MG, BID)
     Route: 058
  39. ACTEMRA [Suspect]
     Active Substance: TOCILIZUMAB
     Dosage: 50 MG, BID(50 MG, BID)
     Route: 058
  40. ACTEMRA [Suspect]
     Active Substance: TOCILIZUMAB
     Dosage: 1000 MG
     Route: 058
  41. ACTEMRA [Suspect]
     Active Substance: TOCILIZUMAB
     Dosage: 500 MG, BID(500 MG BID)
     Route: 058
  42. ACTEMRA [Suspect]
     Active Substance: TOCILIZUMAB
     Dosage: 500 MG, BID(500 MG BID)
     Route: 058
  43. ACTEMRA [Suspect]
     Active Substance: TOCILIZUMAB
     Dosage: 500 MG, QD(500 MG, QD)
     Route: 058
  44. ACTEMRA [Suspect]
     Active Substance: TOCILIZUMAB
     Dosage: UNK
     Route: 065
  45. ACTEMRA [Suspect]
     Active Substance: TOCILIZUMAB
     Dosage: 500 MG(500 MG (1 EVERY 2 DAYS))
     Route: 058
  46. ALBUTEROL SULFATE [Suspect]
     Active Substance: ALBUTEROL SULFATE
     Indication: Product used for unknown indication
     Dosage: UNK (METERED DOSE AEROSOL)
     Route: 065
  47. ALBUTEROL SULFATE [Suspect]
     Active Substance: ALBUTEROL SULFATE
     Dosage: UNK
     Route: 065
  48. ALBUTEROL SULFATE [Suspect]
     Active Substance: ALBUTEROL SULFATE
     Dosage: UNK
     Route: 065
  49. ALBUTEROL SULFATE [Suspect]
     Active Substance: ALBUTEROL SULFATE
     Dosage: UNK
     Route: 065
  50. ALBUTEROL SULFATE [Suspect]
     Active Substance: ALBUTEROL SULFATE
     Dosage: UNK
     Route: 065
  51. ALBUTEROL SULFATE [Suspect]
     Active Substance: ALBUTEROL SULFATE
     Dosage: UNK (METERED DOSE AEROSOL)
     Route: 065
  52. ALBUTEROL [Suspect]
     Active Substance: ALBUTEROL
     Indication: Product used for unknown indication
     Dosage: UNK
     Route: 065
  53. ALBUTEROL [Suspect]
     Active Substance: ALBUTEROL
     Dosage: UNK
     Route: 065
  54. DEMEROL [Suspect]
     Active Substance: MEPERIDINE HYDROCHLORIDE
     Indication: Product used for unknown indication
     Dosage: UNK
     Route: 065
  55. HUMIRA [Suspect]
     Active Substance: ADALIMUMAB
     Indication: Product used for unknown indication
     Dosage: UNK
     Route: 058
  56. HUMIRA [Suspect]
     Active Substance: ADALIMUMAB
     Dosage: UNK
     Route: 058
  57. RITUXIMAB [Suspect]
     Active Substance: RITUXIMAB
     Indication: Rheumatoid arthritis
     Dosage: 1000 MG, QD(1000 MG, QD)
     Route: 042
  58. RITUXIMAB [Suspect]
     Active Substance: RITUXIMAB
     Dosage: 1000 MG, QD(1000 MG, QD)
     Route: 042
  59. RITUXIMAB [Suspect]
     Active Substance: RITUXIMAB
     Dosage: 1000 MG
     Route: 042
  60. RITUXIMAB [Suspect]
     Active Substance: RITUXIMAB
     Dosage: 1000 MG, QD(1000 MG, QD)
     Route: 042
  61. RITUXIMAB [Suspect]
     Active Substance: RITUXIMAB
     Dosage: UNK
     Route: 042
  62. RITUXIMAB [Suspect]
     Active Substance: RITUXIMAB
     Dosage: 1000 MG
     Route: 042
  63. RITUXIMAB [Suspect]
     Active Substance: RITUXIMAB
     Dosage: 1000 MG
     Route: 042
  64. RITUXIMAB [Suspect]
     Active Substance: RITUXIMAB
     Dosage: 1000 MG, QD(1000 MG, QD)
     Route: 042
  65. RITUXIMAB [Suspect]
     Active Substance: RITUXIMAB
     Dosage: 1000 MG, QD(1000 MG, QD)
     Route: 042
  66. RITUXIMAB [Suspect]
     Active Substance: RITUXIMAB
     Dosage: 1000 MG, QD(1000 MG, QD)
     Route: 042
  67. RITUXIMAB [Suspect]
     Active Substance: RITUXIMAB
     Dosage: 1000 MG
     Route: 041
  68. RITUXIMAB [Suspect]
     Active Substance: RITUXIMAB
     Dosage: 1000 MG, QD(1000 MG, Q24H)
     Route: 042
  69. RITUXIMAB [Suspect]
     Active Substance: RITUXIMAB
     Dosage: 1000 MG, QD(1000 MG, Q24H)
     Route: 042
  70. HYDROMORPHONE HYDROCHLORIDE [Suspect]
     Active Substance: HYDROMORPHONE HYDROCHLORIDE
     Indication: Product used for unknown indication
     Dosage: UNK (EXTENDED RELEASE)
     Route: 065
  71. HYDROMORPHONE HYDROCHLORIDE [Suspect]
     Active Substance: HYDROMORPHONE HYDROCHLORIDE
     Dosage: UNK
     Route: 065
  72. ORENCIA [Suspect]
     Active Substance: ABATACEPT
     Indication: Product used for unknown indication
     Dosage: 1 DF, WE(1 DOSAGE FORM, QW)
     Route: 042
  73. ORENCIA [Suspect]
     Active Substance: ABATACEPT
     Dosage: UNK
     Route: 065
  74. CLONIDINE [Suspect]
     Active Substance: CLONIDINE
     Indication: Eczema
     Dosage: UNK
     Route: 065
  75. CLONIDINE [Suspect]
     Active Substance: CLONIDINE
     Dosage: UNK
     Route: 065
  76. REMICADE [Suspect]
     Active Substance: INFLIXIMAB
     Indication: Product used for unknown indication
     Dosage: UNK
     Route: 042
  77. REMICADE [Suspect]
     Active Substance: INFLIXIMAB
     Dosage: UNK
     Route: 042
  78. MOXIFLOXACIN HYDROCHLORIDE [Suspect]
     Active Substance: MOXIFLOXACIN HYDROCHLORIDE
     Indication: Product used for unknown indication
     Dosage: UNK
     Route: 058
  79. MOXIFLOXACIN HYDROCHLORIDE [Suspect]
     Active Substance: MOXIFLOXACIN HYDROCHLORIDE
     Dosage: UNK
     Route: 065
  80. RESTORIL [Suspect]
     Active Substance: TEMAZEPAM
     Indication: Product used for unknown indication
     Dosage: UNK
     Route: 065
  81. RESTORIL [Suspect]
     Active Substance: TEMAZEPAM
     Dosage: UNK
     Route: 065
  82. HYDROMORPHONE HYDROCHLORIDE [Suspect]
     Active Substance: HYDROMORPHONE HYDROCHLORIDE
     Indication: Product used for unknown indication
     Dosage: UNK
     Route: 065
  83. NORTRIPTYLINE HYDROCHLORIDE [Suspect]
     Active Substance: NORTRIPTYLINE HYDROCHLORIDE
     Indication: Product used for unknown indication
     Dosage: UNK
     Route: 065
  84. SINGULAIR [Suspect]
     Active Substance: MONTELUKAST SODIUM
     Indication: Product used for unknown indication
     Dosage: UNK
     Route: 065
  85. MONTELUKAST SODIUM [Suspect]
     Active Substance: MONTELUKAST SODIUM
     Indication: Product used for unknown indication
     Dosage: UNK
     Route: 065
  86. TYLENOL [Suspect]
     Active Substance: ACETAMINOPHEN
     Indication: Product used for unknown indication
     Dosage: UNK
     Route: 065
  87. CODEINE PHOSPHATE [Suspect]
     Active Substance: CODEINE PHOSPHATE
     Indication: Product used for unknown indication
     Dosage: UNK
     Route: 065
  88. CATAPRES [Suspect]
     Active Substance: CLONIDINE HYDROCHLORIDE
     Indication: Product used for unknown indication
     Dosage: UNK
     Route: 065
  89. PANTOPRAZOLE SODIUM [Suspect]
     Active Substance: PANTOPRAZOLE SODIUM
     Indication: Product used for unknown indication
     Dosage: UNK
     Route: 065
  90. PANTOPRAZOLE MAGNESIUM [Suspect]
     Active Substance: PANTOPRAZOLE MAGNESIUM
     Indication: Product used for unknown indication
     Dosage: UNK (ENTERIC COATED)
     Route: 065
  91. DICLOFENAC SODIUM [Suspect]
     Active Substance: DICLOFENAC SODIUM
     Indication: Product used for unknown indication
     Dosage: UNK
     Route: 065
  92. FLUCONAZOLE [Suspect]
     Active Substance: FLUCONAZOLE
     Indication: Product used for unknown indication
     Dosage: UNK
     Route: 065
  93. WELLBUTRIN [Suspect]
     Active Substance: BUPROPION HYDROCHLORIDE
     Indication: Product used for unknown indication
     Dosage: 150 MG(150.0 MG)
     Route: 065
  94. WELLBUTRIN [Suspect]
     Active Substance: BUPROPION HYDROCHLORIDE
     Dosage: 150 MG(150.0 MG)
     Route: 065
  95. WELLBUTRIN [Suspect]
     Active Substance: BUPROPION HYDROCHLORIDE
     Dosage: 150 MG(150.0 MG)
     Route: 065
  96. WELLBUTRIN [Suspect]
     Active Substance: BUPROPION HYDROCHLORIDE
     Dosage: UNK
     Route: 065
  97. WELLBUTRIN [Suspect]
     Active Substance: BUPROPION HYDROCHLORIDE
     Dosage: UNK
     Route: 065
  98. WELLBUTRIN [Suspect]
     Active Substance: BUPROPION HYDROCHLORIDE
     Dosage: UNK
     Route: 065
  99. WELLBUTRIN [Suspect]
     Active Substance: BUPROPION HYDROCHLORIDE
     Dosage: UNK
     Route: 065
  100. WELLBUTRIN [Suspect]
     Active Substance: BUPROPION HYDROCHLORIDE
     Dosage: UNK
     Route: 065
  101. FUROSEMIDE [Suspect]
     Active Substance: FUROSEMIDE
     Indication: Product used for unknown indication
     Dosage: UNK
     Route: 065
  102. CRINONE [Suspect]
     Active Substance: PROGESTERONE
     Indication: Product used for unknown indication
     Dosage: UNK
     Route: 065
  103. ONDANSETRON [Suspect]
     Active Substance: ONDANSETRON
     Indication: Product used for unknown indication
     Dosage: UNK
     Route: 065
  104. NORTRIPTYLINE [Suspect]
     Active Substance: NORTRIPTYLINE
     Indication: Product used for unknown indication
     Dosage: 10 MG
     Route: 065
  105. NORTRIPTYLINE [Suspect]
     Active Substance: NORTRIPTYLINE
     Dosage: 10 MG
     Route: 065
  106. NORTRIPTYLINE [Suspect]
     Active Substance: NORTRIPTYLINE
     Dosage: 10 MG
     Route: 065
  107. VENLAFAXINE HYDROCHLORIDE [Suspect]
     Active Substance: VENLAFAXINE HYDROCHLORIDE
     Indication: Product used for unknown indication
     Dosage: UNK
     Route: 065
  108. QUETIAPINE FUMARATE [Suspect]
     Active Substance: QUETIAPINE FUMARATE
     Indication: Product used for unknown indication
     Dosage: UNK
     Route: 065
  109. HERBALS\SENNOSIDES [Suspect]
     Active Substance: HERBALS\SENNOSIDES
     Indication: Product used for unknown indication
     Dosage: UNK
     Route: 065
  110. PSYLLIUM HUSK [Suspect]
     Active Substance: PSYLLIUM HUSK
     Indication: Product used for unknown indication
     Dosage: UNK
     Route: 065
  111. RANITIDINE HYDROCHLORIDE [Suspect]
     Active Substance: RANITIDINE HYDROCHLORIDE
     Indication: Product used for unknown indication
     Dosage: 20 MG, QD(20.0 MG, QD)
     Route: 065
  112. RANITIDINE HYDROCHLORIDE [Suspect]
     Active Substance: RANITIDINE HYDROCHLORIDE
     Dosage: 20 MG, QD(20.0 MG, QD)
     Route: 065
  113. RANITIDINE HYDROCHLORIDE [Suspect]
     Active Substance: RANITIDINE HYDROCHLORIDE
     Dosage: UNK
     Route: 065
  114. RANITIDINE HYDROCHLORIDE [Suspect]
     Active Substance: RANITIDINE HYDROCHLORIDE
     Dosage: 20 MG, QD(20.0 MG, QD)
     Route: 065
  115. RANITIDINE HYDROCHLORIDE [Suspect]
     Active Substance: RANITIDINE HYDROCHLORIDE
     Dosage: UNK
     Route: 065
  116. RANITIDINE HYDROCHLORIDE [Suspect]
     Active Substance: RANITIDINE HYDROCHLORIDE
     Dosage: UNK
     Route: 065
  117. RANITIDINE HYDROCHLORIDE [Suspect]
     Active Substance: RANITIDINE HYDROCHLORIDE
     Dosage: UNK
     Route: 065
  118. RANITIDINE HYDROCHLORIDE [Suspect]
     Active Substance: RANITIDINE HYDROCHLORIDE
     Dosage: 20 MG, QD(20.0 MG, QD)
     Route: 065
  119. RANITIDINE HYDROCHLORIDE [Suspect]
     Active Substance: RANITIDINE HYDROCHLORIDE
     Dosage: 20 MG, QD(20 MG, Q24H)
     Route: 065
  120. DIPHENHYDRAMINE [Suspect]
     Active Substance: DIPHENHYDRAMINE
     Indication: Product used for unknown indication
     Dosage: 75 MG
     Route: 065
  121. DIPHENHYDRAMINE [Suspect]
     Active Substance: DIPHENHYDRAMINE
     Dosage: 75 MG, QD(75.0 MG, QD)
     Route: 065
  122. DIPHENHYDRAMINE [Suspect]
     Active Substance: DIPHENHYDRAMINE
     Dosage: 75 MG, QD(75.0 MG, QD)
     Route: 065
  123. DIPHENHYDRAMINE [Suspect]
     Active Substance: DIPHENHYDRAMINE
     Dosage: 75 MG, QD(75.0 MG, QD)
     Route: 065
  124. DIPHENHYDRAMINE [Suspect]
     Active Substance: DIPHENHYDRAMINE
     Dosage: 75 MG
     Route: 065
  125. OXYCODONE AND ACETAMINOPHEN [Suspect]
     Active Substance: ACETAMINOPHEN\OXYCODONE HYDROCHLORIDE
     Indication: Product used for unknown indication
     Dosage: UNK
     Route: 065
  126. CYCLOBENZAPRINE HYDROCHLORIDE [Suspect]
     Active Substance: CYCLOBENZAPRINE HYDROCHLORIDE
     Indication: Eczema
     Dosage: UNK
     Route: 065
  127. CYCLOBENZAPRINE HYDROCHLORIDE [Suspect]
     Active Substance: CYCLOBENZAPRINE HYDROCHLORIDE
     Dosage: UNK
     Route: 065
  128. CETIRIZINE [Suspect]
     Active Substance: CETIRIZINE HYDROCHLORIDE
     Indication: Product used for unknown indication
     Dosage: 20 MG, QD(20.0 MG, QD)
     Route: 065
  129. CETIRIZINE [Suspect]
     Active Substance: CETIRIZINE HYDROCHLORIDE
     Dosage: 20 MG, QD(20.0 MG, QD)
     Route: 065
  130. CETIRIZINE [Suspect]
     Active Substance: CETIRIZINE HYDROCHLORIDE
     Dosage: 20 MG, QD(20.0 MG, QD)
     Route: 065
  131. CETIRIZINE [Suspect]
     Active Substance: CETIRIZINE HYDROCHLORIDE
     Dosage: 20 MG, QD(20.0 MG, QD)
     Route: 065
  132. CETIRIZINE [Suspect]
     Active Substance: CETIRIZINE HYDROCHLORIDE
     Dosage: 20 MG, QD(20.0 MG, QD)
     Route: 065
  133. CHLORMEZANONE [Suspect]
     Active Substance: CHLORMEZANONE
     Indication: Rheumatoid arthritis
     Dosage: UNK
     Route: 065
  134. CHLORMEZANONE [Suspect]
     Active Substance: CHLORMEZANONE
     Dosage: UNK
     Route: 065
  135. CITALOPRAM HYDROBROMIDE [Suspect]
     Active Substance: CITALOPRAM HYDROBROMIDE
     Indication: Product used for unknown indication
     Dosage: UNK
     Route: 065
  136. CITALOPRAM HYDROBROMIDE [Suspect]
     Active Substance: CITALOPRAM HYDROBROMIDE
     Dosage: UNK
     Route: 065
  137. CITALOPRAM HYDROBROMIDE [Suspect]
     Active Substance: CITALOPRAM HYDROBROMIDE
     Dosage: UNK
     Route: 065
  138. HYDROMORPHONE [Suspect]
     Active Substance: HYDROMORPHONE
     Indication: Product used for unknown indication
     Dosage: UNK
     Route: 065
  139. HYDROMORPHONE [Suspect]
     Active Substance: HYDROMORPHONE
     Dosage: UNK
     Route: 065
  140. KETOPROFEN [Suspect]
     Active Substance: KETOPROFEN
     Indication: Product used for unknown indication
     Dosage: UNK
     Route: 065
  141. METHYLPREDNISOLONE ACETATE [Suspect]
     Active Substance: METHYLPREDNISOLONE ACETATE
     Indication: Product used for unknown indication
     Dosage: 1 DF, QD(1 DOSAGE FORM, QD)
     Route: 065
  142. METHYLPREDNISOLONE ACETATE [Suspect]
     Active Substance: METHYLPREDNISOLONE ACETATE
     Dosage: 1 DF, MO(1 DOSAGE FORM, QMO)
     Route: 065
  143. METHYLPREDNISOLONE ACETATE [Suspect]
     Active Substance: METHYLPREDNISOLONE ACETATE
     Dosage: UNK UNK, MO(UNK, QMO)
     Route: 065
  144. METHYLPREDNISOLONE ACETATE [Suspect]
     Active Substance: METHYLPREDNISOLONE ACETATE
     Dosage: UNK UNK, QD
     Route: 065
  145. METHYLPREDNISOLONE ACETATE [Suspect]
     Active Substance: METHYLPREDNISOLONE ACETATE
     Dosage: UNK
     Route: 065
  146. METHYLPREDNISOLONE ACETATE [Suspect]
     Active Substance: METHYLPREDNISOLONE ACETATE
     Dosage: 1 DF(1 DOSAGE FORM)
     Route: 065
  147. METHYLPREDNISOLONE ACETATE [Suspect]
     Active Substance: METHYLPREDNISOLONE ACETATE
     Dosage: UNK
     Route: 065
  148. METHYLPREDNISOLONE ACETATE [Suspect]
     Active Substance: METHYLPREDNISOLONE ACETATE
     Dosage: 1 DF(1 DOSAGE FORM)
     Route: 065
  149. METHYLPREDNISOLONE ACETATE [Suspect]
     Active Substance: METHYLPREDNISOLONE ACETATE
     Dosage: UNK UNK, BID(UNK, Q24H)
     Route: 065
  150. PANTOPRAZOLE MAGNESIUM [Suspect]
     Active Substance: PANTOPRAZOLE MAGNESIUM
     Indication: Product used for unknown indication
     Dosage: UNK (ENTERIC COATED)
     Route: 065
  151. PANTOPRAZOLE MAGNESIUM [Suspect]
     Active Substance: PANTOPRAZOLE MAGNESIUM
     Dosage: UNK
     Route: 065
  152. PANTOPRAZOLE MAGNESIUM [Suspect]
     Active Substance: PANTOPRAZOLE MAGNESIUM
     Dosage: UNK
     Route: 065
  153. PANTOPRAZOLE MAGNESIUM [Suspect]
     Active Substance: PANTOPRAZOLE MAGNESIUM
     Dosage: UNK
     Route: 065
  154. PANTOPRAZOLE MAGNESIUM [Suspect]
     Active Substance: PANTOPRAZOLE MAGNESIUM
     Dosage: UNK (TABLETS)
     Route: 065
  155. PANTOPRAZOLE MAGNESIUM [Suspect]
     Active Substance: PANTOPRAZOLE MAGNESIUM
     Dosage: UNK (FILM-COATED TABLET)
     Route: 065
  156. PANTOPRAZOLE SODIUM [Suspect]
     Active Substance: PANTOPRAZOLE SODIUM
     Indication: Product used for unknown indication
     Dosage: UNK
     Route: 065
  157. HERBALS\PLANTAGO OVATA LEAF [Suspect]
     Active Substance: HERBALS\PLANTAGO OVATA LEAF
     Indication: Product used for unknown indication
     Dosage: UNK
     Route: 065
  158. PROGESTERONE [Suspect]
     Active Substance: PROGESTERONE
     Indication: Product used for unknown indication
     Dosage: UNK
     Route: 030
  159. PROGESTERONE [Suspect]
     Active Substance: PROGESTERONE
     Dosage: UNK
     Route: 065
  160. PROGESTERONE [Suspect]
     Active Substance: PROGESTERONE
     Dosage: UNK
     Route: 030
  161. PROGESTERONE [Suspect]
     Active Substance: PROGESTERONE
     Dosage: UNK
     Route: 030
  162. PROGESTERONE [Suspect]
     Active Substance: PROGESTERONE
     Dosage: UNK
     Route: 065
  163. PROGESTERONE [Suspect]
     Active Substance: PROGESTERONE
     Dosage: UNK
     Route: 030
  164. PROGESTERONE [Suspect]
     Active Substance: PROGESTERONE
     Dosage: UNK
     Route: 065
  165. PROGESTERONE [Suspect]
     Active Substance: PROGESTERONE
     Dosage: UNK
     Route: 030
  166. PROGESTERONE [Suspect]
     Active Substance: PROGESTERONE
     Dosage: UNK
     Route: 065
  167. CETIRIZINE HYDROCHLORIDE [Suspect]
     Active Substance: CETIRIZINE HYDROCHLORIDE
     Indication: Product used for unknown indication
     Dosage: 20 MG, QD(20 MG, QD)
     Route: 065
  168. CETIRIZINE HYDROCHLORIDE [Suspect]
     Active Substance: CETIRIZINE HYDROCHLORIDE
     Dosage: 20 MG, QD(20 MG, QD)
     Route: 065
  169. CETIRIZINE HYDROCHLORIDE [Suspect]
     Active Substance: CETIRIZINE HYDROCHLORIDE
     Dosage: 20 MG, QD(20 MG, QD)
     Route: 065
  170. SENNA LEAF [Suspect]
     Active Substance: SENNA LEAF
     Indication: Product used for unknown indication
     Dosage: UNK
     Route: 048
  171. SENNA LEAF [Suspect]
     Active Substance: SENNA LEAF
     Dosage: UNK
     Route: 065
  172. SENNA LEAF [Suspect]
     Active Substance: SENNA LEAF
     Dosage: UNK
     Route: 065
  173. SENNA LEAF [Suspect]
     Active Substance: SENNA LEAF
     Dosage: UNK
     Route: 048
  174. SENOKOT [Suspect]
     Active Substance: SENNOSIDES
     Indication: Product used for unknown indication
     Dosage: UNK
     Route: 065
  175. SENOKOT [Suspect]
     Active Substance: SENNOSIDES
     Dosage: UNK
     Route: 065
  176. TEMAZEPAM [Suspect]
     Active Substance: TEMAZEPAM
     Indication: Product used for unknown indication
     Dosage: UNK
     Route: 065
  177. PROMETRIUM [Suspect]
     Active Substance: PROGESTERONE
     Indication: Product used for unknown indication
     Dosage: UNK
     Route: 065
  178. PROMETRIUM [Suspect]
     Active Substance: PROGESTERONE
     Dosage: UNK
     Route: 065
  179. METHYLPREDNISOLONE [Suspect]
     Active Substance: METHYLPREDNISOLONE
     Indication: Product used for unknown indication
     Dosage: UNK UNK, MO(UNK, QMO)
     Route: 065
  180. METHYLPREDNISOLONE [Suspect]
     Active Substance: METHYLPREDNISOLONE
     Dosage: 1 DF, MO(1 DOSAGE FORM, QMO)
     Route: 065
  181. SENNA LEAF [Suspect]
     Active Substance: SENNA LEAF
     Indication: Product used for unknown indication
     Dosage: UNK
     Route: 065
  182. BUPROPION HYDROCHLORIDE [Suspect]
     Active Substance: BUPROPION HYDROCHLORIDE
     Indication: Product used for unknown indication
     Dosage: UNK
     Route: 065
  183. BUPROPION HYDROCHLORIDE [Suspect]
     Active Substance: BUPROPION HYDROCHLORIDE
     Indication: Product used for unknown indication
     Dosage: UNK
     Route: 065
  184. BUPROPION HYDROCHLORIDE [Suspect]
     Active Substance: BUPROPION HYDROCHLORIDE
     Dosage: 150 MG
     Route: 065
  185. BUPROPION HYDROCHLORIDE [Suspect]
     Active Substance: BUPROPION HYDROCHLORIDE
     Dosage: 150 MG
     Route: 065
  186. BUPROPION HYDROCHLORIDE [Suspect]
     Active Substance: BUPROPION HYDROCHLORIDE
     Dosage: 150 MG
     Route: 065
  187. NORTRIPTYLINE [Suspect]
     Active Substance: NORTRIPTYLINE
     Indication: Product used for unknown indication
     Dosage: UNK
     Route: 065
  188. CYCLOBENZAPRINE [Suspect]
     Active Substance: CYCLOBENZAPRINE
     Indication: Eczema
     Dosage: UNK
     Route: 047
  189. VITAMIN C [Suspect]
     Active Substance: ASCORBIC ACID
     Indication: Product used for unknown indication
     Dosage: UNK
     Route: 065
  190. VITAMIN C [Suspect]
     Active Substance: ASCORBIC ACID
     Dosage: UNK
     Route: 065
  191. VITAMIN C [Suspect]
     Active Substance: ASCORBIC ACID
     Dosage: UNK
     Route: 065
  192. VITAMIN C [Suspect]
     Active Substance: ASCORBIC ACID
     Indication: Product used for unknown indication
     Dosage: UNK (ASCORBIC ACID TABLET)
     Route: 065
  193. METHYLPREDNISOLONE SODIUM SUCCINATE [Suspect]
     Active Substance: METHYLPREDNISOLONE SODIUM SUCCINATE
     Indication: Product used for unknown indication
     Dosage: 1 DF(1 DOSAGE FORM)
     Route: 065
  194. PROGESTERONE [Suspect]
     Active Substance: PROGESTERONE
     Indication: Product used for unknown indication
     Dosage: UNK
     Route: 065
  195. PROGESTERONE [Suspect]
     Active Substance: PROGESTERONE
     Dosage: UNK
     Route: 065
  196. PROGESTERONE [Suspect]
     Active Substance: PROGESTERONE
     Dosage: UNK
     Route: 065
  197. PROGESTERONE [Suspect]
     Active Substance: PROGESTERONE
     Dosage: UNK
     Route: 065
  198. PROGESTERONE [Suspect]
     Active Substance: PROGESTERONE
     Dosage: UNK
     Route: 065
  199. PROGESTERONE [Suspect]
     Active Substance: PROGESTERONE
     Dosage: UNK
     Route: 065
  200. TOCILIZUMAB [Suspect]
     Active Substance: TOCILIZUMAB
     Indication: Rheumatoid arthritis
     Dosage: UNK
     Route: 065
  201. TOCILIZUMAB [Suspect]
     Active Substance: TOCILIZUMAB
     Dosage: UNK
     Route: 058
  202. TOCILIZUMAB [Suspect]
     Active Substance: TOCILIZUMAB
     Dosage: 500 MG, BID(500 MG, BID)
     Route: 058
  203. CETIRIZINE HYDROCHLORIDE [Suspect]
     Active Substance: CETIRIZINE HYDROCHLORIDE
     Indication: Product used for unknown indication
     Dosage: 20 MG, QD(20 MG, Q24H)
     Route: 065
  204. CETIRIZINE HYDROCHLORIDE [Suspect]
     Active Substance: CETIRIZINE HYDROCHLORIDE
     Dosage: 20 MG, QD(20 MG, Q24H)
     Route: 065
  205. CETIRIZINE HYDROCHLORIDE [Suspect]
     Active Substance: CETIRIZINE HYDROCHLORIDE
     Dosage: 20 MG
     Route: 065
  206. DIPHENHYDRAMINE [Suspect]
     Active Substance: DIPHENHYDRAMINE
     Indication: Product used for unknown indication
     Dosage: 75 MG, QD(75 MG, Q24H)
     Route: 065
  207. DIPHENHYDRAMINE [Suspect]
     Active Substance: DIPHENHYDRAMINE
     Dosage: 75 MG, QD(75 MG, Q24H)
     Route: 065
  208. DIPHENHYDRAMINE [Suspect]
     Active Substance: DIPHENHYDRAMINE
     Dosage: 75 MG, QD(75 MG, Q24H)
     Route: 065
  209. DIPHENHYDRAMINE [Suspect]
     Active Substance: DIPHENHYDRAMINE
     Dosage: 75 MG
     Route: 065
  210. GABAPENTIN [Suspect]
     Active Substance: GABAPENTIN
     Indication: Product used for unknown indication
     Dosage: UNK
     Route: 065
  211. METHYLPREDNISOLONE SODIUM PHOSPHATE [Suspect]
     Active Substance: METHYLPREDNISOLONE SODIUM PHOSPHATE
     Indication: Product used for unknown indication
     Dosage: UNK
     Route: 065
  212. PROGESTERONE [Suspect]
     Active Substance: PROGESTERONE
     Indication: Product used for unknown indication
     Dosage: UNK
     Route: 065
  213. PROGESTERONE [Suspect]
     Active Substance: PROGESTERONE
     Dosage: UNK
     Route: 065
  214. PROGESTERONE [Suspect]
     Active Substance: PROGESTERONE
     Indication: Product used for unknown indication
     Dosage: UNK
     Route: 065
  215. RITUXIMAB [Suspect]
     Active Substance: RITUXIMAB
     Indication: Rheumatoid arthritis
     Dosage: 1000 MG
     Route: 042
  216. ZOPICLONE [Suspect]
     Active Substance: ZOPICLONE
     Indication: Product used for unknown indication
     Dosage: UNK
     Route: 065
  217. DOLUTEGRAVIR SODIUM [Concomitant]
     Active Substance: DOLUTEGRAVIR SODIUM
     Indication: Product used for unknown indication
     Dosage: UNK
     Route: 065
  218. VITAMIN C [Concomitant]
     Active Substance: ASCORBIC ACID
     Indication: Product used for unknown indication
     Dosage: UNK
     Route: 065

REACTIONS (9)
  - Asthma [Not Recovered/Not Resolved]
  - Infection [Not Recovered/Not Resolved]
  - Pyrexia [Not Recovered/Not Resolved]
  - Rash [Not Recovered/Not Resolved]
  - Rash erythematous [Not Recovered/Not Resolved]
  - Rheumatoid arthritis [Not Recovered/Not Resolved]
  - Thrombocytopenia [Not Recovered/Not Resolved]
  - Upper respiratory tract infection [Not Recovered/Not Resolved]
  - Exposure during pregnancy [Unknown]
